FAERS Safety Report 12731417 (Version 1)
Quarter: 2016Q3

REPORT INFORMATION
  Report Type: Spontaneous
  Country: US (occurrence: US)
  Receive Date: 20160912
  Receipt Date: 20160912
  Transmission Date: 20161109
  Serious: No
  Sender: FDA-Public Use
  Company Number: US-BRISTOL-MYERS SQUIBB COMPANY-BMS-2016-074442

PATIENT
  Sex: Female

DRUGS (2)
  1. XANAX [Concomitant]
     Active Substance: ALPRAZOLAM
     Indication: PRODUCT USED FOR UNKNOWN INDICATION
     Route: 065
  2. ABILIFY [Suspect]
     Active Substance: ARIPIPRAZOLE
     Indication: AGITATION
     Dosage: 0.5 ML, QD
     Route: 048

REACTIONS (2)
  - Circumstance or information capable of leading to medication error [Unknown]
  - Product use issue [Unknown]
